FAERS Safety Report 8348570-5 (Version None)
Quarter: 2012Q2

REPORT INFORMATION
  Report Type: 
  Country: None (occurrence: None)
  Receive Date: 20120510
  Receipt Date: 20120502
  Transmission Date: 20120825
  Serious: Yes (Other)
  Sender: FDA-Public Use
  Company Number: US-AMGEN-USASP2012027925

PATIENT
  Age: 47 Year
  Sex: Male

DRUGS (2)
  1. ENBREL [Suspect]
     Indication: RHEUMATOID ARTHRITIS
     Dosage: 50 MG, QWK
     Dates: start: 20120315
  2. METHOTREXATE [Concomitant]
     Dosage: UNK
     Dates: end: 20120417

REACTIONS (6)
  - DYSKINESIA [None]
  - TINNITUS [None]
  - TIC [None]
  - PHOTOPSIA [None]
  - MUSCLE TWITCHING [None]
  - MALAISE [None]
